FAERS Safety Report 8923589 (Version 4)
Quarter: 2013Q2

REPORT INFORMATION
  Report Type: Spontaneous
  Country: US (occurrence: US)
  Receive Date: 20121123
  Receipt Date: 20130606
  Transmission Date: 20140414
  Serious: No
  Sender: FDA-Public Use
  Company Number: US-009507513-1211USA009053

PATIENT
  Age: 24 Year
  Sex: Female
  Weight: 117.1 kg

DRUGS (1)
  1. NEXPLANON [Suspect]
     Indication: CONTRACEPTION
     Dosage: 68 MG PER  3 YEAR IMPLANT
     Route: 059
     Dates: start: 20120626, end: 20121120

REACTIONS (4)
  - Device kink [Recovered/Resolved]
  - Pain in extremity [Unknown]
  - Device breakage [Recovered/Resolved]
  - Device damage [Recovered/Resolved]
